FAERS Safety Report 8354959-0 (Version None)
Quarter: 2012Q2

REPORT INFORMATION
  Report Type: 
  Country: None (occurrence: None)
  Receive Date: 20120511
  Receipt Date: 20120504
  Transmission Date: 20120825
  Serious: Yes (Life-Threatening, Hospitalization, Congenital Anomaly)
  Sender: FDA-Public Use
  Company Number: DE-TEVA-336874GER

PATIENT
  Age: 0 Year
  Sex: Female
  Weight: 0.82 kg

DRUGS (3)
  1. SERTRALINE HYDROCHLORIDE [Suspect]
     Route: 064
  2. BETAMETHASONE [Concomitant]
     Route: 064
  3. FOLSAURE [Concomitant]
     Route: 064

REACTIONS (3)
  - PREMATURE BABY [None]
  - VENTRICULAR SEPTAL DEFECT [None]
  - PATENT DUCTUS ARTERIOSUS [None]
